FAERS Safety Report 9101023 (Version 3)
Quarter: 2013Q2

REPORT INFORMATION
  Report Type: Spontaneous
  Country: IT (occurrence: IT)
  Receive Date: 20130215
  Receipt Date: 20130403
  Transmission Date: 20140414
  Serious: Yes (Other)
  Sender: FDA-Public Use
  Company Number: IT-BMSGILMSD-2013-0069942

PATIENT
  Age: 36 Year
  Sex: Male

DRUGS (2)
  1. ATRIPLA [Suspect]
     Indication: HIV INFECTION
     Dosage: 1 DF, UNK
     Route: 048
     Dates: start: 20120201, end: 20130213
  2. ATRIPLA [Suspect]
     Dosage: UNK
     Route: 048
     Dates: start: 20130215

REACTIONS (1)
  - Neutropenia [Unknown]
